FAERS Safety Report 8430600-3 (Version None)
Quarter: 2012Q2

REPORT INFORMATION
  Report Type: 
  Country: None (occurrence: None)
  Receive Date: 20120608
  Receipt Date: 20120608
  Transmission Date: 20120825
  Serious: Yes (Hospitalization)
  Sender: FDA-Public Use
  Company Number: None

PATIENT
  Sex: Female
  Weight: 59.42 kg

DRUGS (2)
  1. TAXOL [Suspect]
     Dosage: 291 MG
     Dates: end: 20101108
  2. TOPOTECAN [Suspect]
     Dosage: 3.6 MG
     Dates: end: 20101110

REACTIONS (9)
  - NAUSEA [None]
  - DECREASED APPETITE [None]
  - HYPOTENSION [None]
  - HAEMOGLOBIN DECREASED [None]
  - NEUTROPHIL COUNT DECREASED [None]
  - FATIGUE [None]
  - URINARY TRACT INFECTION [None]
  - FEBRILE NEUTROPENIA [None]
  - PLATELET COUNT DECREASED [None]
